FAERS Safety Report 11283303 (Version 2)
Quarter: 2015Q3

REPORT INFORMATION
  Report Type: Report from Study
  Country: IT (occurrence: IT)
  Receive Date: 20150720
  Receipt Date: 20150723
  Transmission Date: 20151125
  Serious: Yes (Death, Hospitalization, Other)
  Sender: FDA-Public Use
  Company Number: IT-GLAXOSMITHKLINE-IT2015GSK101134

PATIENT
  Age: 31 Year
  Sex: Male

DRUGS (5)
  1. TRAMETINIB [Suspect]
     Active Substance: TRAMETINIB
     Indication: METASTATIC MALIGNANT MELANOMA
     Dosage: 2 MG, QD
     Route: 048
     Dates: start: 20141030, end: 20150512
  2. PLASIL [Concomitant]
     Active Substance: METOCLOPRAMIDE HYDROCHLORIDE
     Indication: PROPHYLAXIS OF NAUSEA AND VOMITING
     Dosage: 20 MG, UNK
     Route: 048
     Dates: start: 20150425, end: 20150504
  3. SOLDESAM [Concomitant]
     Active Substance: DEXAMETHASONE
     Dosage: 12 MG UNK
     Dates: start: 20150519, end: 20150522
  4. SOLDESAM [Concomitant]
     Active Substance: DEXAMETHASONE
     Indication: BRAIN OEDEMA
     Dosage: 8 MG, UNK
     Dates: start: 20140626, end: 20150519
  5. DABRAFENIB [Suspect]
     Active Substance: DABRAFENIB
     Indication: METASTATIC MALIGNANT MELANOMA
     Dosage: 150 MG, BID
     Route: 048
     Dates: start: 20141030, end: 20150512

REACTIONS (5)
  - Metastatic malignant melanoma [Fatal]
  - Pneumonia [Fatal]
  - Productive cough [Fatal]
  - General physical health deterioration [Fatal]
  - Disease progression [Fatal]

NARRATIVE: CASE EVENT DATE: 20150522
